FAERS Safety Report 5245668-5 (Version None)
Quarter: 2007Q1

REPORT INFORMATION
  Report Type: 
  Country: None (occurrence: None)
  Receive Date: 20070216
  Receipt Date: 20070126
  Transmission Date: 20070707
  Serious: Yes (Hospitalization)
  Sender: FDA-Public Use
  Company Number: 229724

PATIENT
  Age: 48 Year
  Sex: Female
  Weight: 59.6 kg

DRUGS (17)
  1. AVASTIN [Suspect]
     Indication: BREAST CANCER METASTATIC
     Dosage: 929 MG, Q3W, INTRAVENOUS
     Route: 042
     Dates: start: 20051020, end: 20060518
  2. AVASTIN [Suspect]
     Indication: BREAST CANCER METASTATIC
     Dosage: 929 MG, Q3W, INTRAVENOUS
     Route: 042
     Dates: start: 20060101, end: 20060927
  3. CAPECITABINE(CAPECITABINE) [Suspect]
     Indication: BREAST CANCER METASTATIC
     Dosage: 1000 MG/M2, BID, ORAL
     Route: 048
     Dates: start: 20051020
  4. PERCOCET [Suspect]
     Indication: BREAST CANCER METASTATIC
     Dosage: 252 MG, Q6H
     Dates: start: 20060406
  5. ZOMETA [Suspect]
     Indication: METASTASES TO BONE
  6. IMITREX [Concomitant]
  7. PRILOSEC [Concomitant]
  8. PROCRIT [Concomitant]
  9. ZOLOFT [Concomitant]
  10. OXYCODONE HCL [Concomitant]
  11. PROTONIX [Concomitant]
  12. REGLAN [Concomitant]
  13. DECADRON [Concomitant]
  14. ZOFRAN [Concomitant]
  15. SENOKOT [Concomitant]
  16. DULCOLAX [Concomitant]
  17. AMBIEN [Concomitant]

REACTIONS (16)
  - ABDOMINAL PAIN UPPER [None]
  - ANAEMIA [None]
  - ANOREXIA [None]
  - BONE PAIN [None]
  - DEHYDRATION [None]
  - FATIGUE [None]
  - FEELING ABNORMAL [None]
  - HEADACHE [None]
  - INFLUENZA LIKE ILLNESS [None]
  - MUSCLE DISORDER [None]
  - MUSCULAR WEAKNESS [None]
  - NAUSEA [None]
  - PAIN [None]
  - PYREXIA [None]
  - SKIN TOXICITY [None]
  - VOMITING [None]
